FAERS Safety Report 4638616-X (Version None)
Quarter: 2005Q2

REPORT INFORMATION
  Report Type: 
  Country: None (occurrence: None)
  Receive Date: 20050415
  Receipt Date: 20050415
  Transmission Date: 20051028
  Serious: Yes (Hospitalization)
  Sender: FDA-Public Use
  Company Number: None

PATIENT
  Sex: Male

DRUGS (12)
  1. REMERON [Suspect]
     Dosage: 15 MG PO QHS
     Route: 048
     Dates: start: 20050226
  2. REMERON [Suspect]
     Dosage: 15 MG PO QHS
     Route: 048
     Dates: start: 20050227
  3. REMERON [Suspect]
     Dosage: 15 MG PO QHS
     Route: 048
     Dates: start: 20050301
  4. REMERON [Suspect]
     Dosage: 15 MG PO QHS
     Route: 048
     Dates: start: 20050302
  5. LEVOXYL [Concomitant]
  6. ASPIRIN [Concomitant]
  7. LISINOPRIL [Concomitant]
  8. SENNA [Concomitant]
  9. DOSS [Concomitant]
  10. DETROL [Concomitant]
  11. METFORMIN HCL [Concomitant]
  12. METHADONE [Concomitant]

REACTIONS (6)
  - DIFFICULTY IN WALKING [None]
  - MUSCLE TWITCHING [None]
  - MYOCLONUS [None]
  - SOMNOLENCE [None]
  - SPEECH DISORDER [None]
  - VISION BLURRED [None]
